FAERS Safety Report 15116935 (Version 4)
Quarter: 2018Q3

REPORT INFORMATION
  Report Type: Spontaneous
  Country: BR (occurrence: BR)
  Receive Date: 20180706
  Receipt Date: 20180808
  Transmission Date: 20181010
  Serious: Yes (Hospitalization, Other)
  Sender: FDA-Public Use
  Company Number: BR-JNJFOC-20180101446

PATIENT
  Age: 77 Year
  Sex: Male

DRUGS (14)
  1. XARELTO [Suspect]
     Active Substance: RIVAROXABAN
     Indication: CEREBROVASCULAR ACCIDENT
     Route: 048
     Dates: start: 201710
  2. XARELTO [Suspect]
     Active Substance: RIVAROXABAN
     Indication: ATRIAL FIBRILLATION
     Route: 048
     Dates: start: 201710
  3. XARELTO [Suspect]
     Active Substance: RIVAROXABAN
     Indication: ARRHYTHMIA
     Route: 048
     Dates: start: 201710
  4. GALANTAMINE. [Concomitant]
     Active Substance: GALANTAMINE
     Indication: DEMENTIA ALZHEIMER^S TYPE
     Route: 065
  5. INSULIN [Concomitant]
     Active Substance: INSULIN NOS
     Indication: DIABETES MELLITUS
     Route: 058
     Dates: start: 2005
  6. XARELTO [Suspect]
     Active Substance: RIVAROXABAN
     Indication: ARTERIAL THERAPEUTIC PROCEDURE
     Route: 048
     Dates: start: 201710
  7. AAS [Concomitant]
     Active Substance: ASPIRIN
     Indication: ANTICOAGULANT THERAPY
     Route: 048
     Dates: start: 2012
  8. SIMVASTATIN. [Concomitant]
     Active Substance: SIMVASTATIN
     Indication: BLOOD CHOLESTEROL ABNORMAL
     Route: 048
     Dates: start: 2008
  9. ESPIRONOLACTONA [Concomitant]
     Active Substance: SPIRONOLACTONE
     Indication: BLOOD CHOLESTEROL ABNORMAL
     Route: 065
  10. LOSARTAN. [Concomitant]
     Active Substance: LOSARTAN
     Indication: HYPERTENSION
     Route: 048
     Dates: start: 2012
  11. ESPIRONOLACTONA [Concomitant]
     Active Substance: SPIRONOLACTONE
     Indication: BLOOD CHOLESTEROL ABNORMAL
     Dosage: 1 TABLET IN THE MORNING
     Route: 048
     Dates: start: 2016
  12. METFORMIN [Concomitant]
     Active Substance: METFORMIN HYDROCHLORIDE
     Indication: DIABETES MELLITUS
     Dosage: 3 TABLETS DAILY
     Route: 048
     Dates: start: 2005
  13. SELOZOK [Concomitant]
     Active Substance: METOPROLOL SUCCINATE
     Route: 048
     Dates: start: 2016
  14. XARELTO [Suspect]
     Active Substance: RIVAROXABAN
     Indication: LEFT VENTRICULAR HYPERTROPHY
     Route: 048
     Dates: start: 201710

REACTIONS (19)
  - Gastric haemorrhage [Unknown]
  - Oesophageal haemorrhage [Unknown]
  - Dementia Alzheimer^s type [Unknown]
  - Somnolence [Not Recovered/Not Resolved]
  - Gastric ulcer [Unknown]
  - Lung infection [Unknown]
  - Pleural effusion [Unknown]
  - Off label use [Unknown]
  - Gastric haemorrhage [Not Recovered/Not Resolved]
  - Product use in unapproved indication [Unknown]
  - Gastric ulcer [Not Recovered/Not Resolved]
  - Pneumonia [Unknown]
  - Anaemia [Not Recovered/Not Resolved]
  - Feeling abnormal [Unknown]
  - Cerebrovascular accident [Unknown]
  - Gastric ulcer [Unknown]
  - Cough [Not Recovered/Not Resolved]
  - Oesophageal haemorrhage [Unknown]
  - Irritability [Not Recovered/Not Resolved]

NARRATIVE: CASE EVENT DATE: 201710
